FAERS Safety Report 9982862 (Version 1)
Quarter: 2014Q1

REPORT INFORMATION
  Report Type: Spontaneous
  Country: US (occurrence: None)
  Receive Date: 20140306
  Receipt Date: 20140306
  Transmission Date: 20141002
  Serious: No
  Sender: FDA-Public Use
  Company Number: None

PATIENT
  Age: 52 Year
  Sex: Female

DRUGS (1)
  1. ADCIRCA 20MG ELI LILLY [Suspect]
     Dosage: ADCIRCA 20MG 2TABLETS DAILY ORAL
     Route: 048
     Dates: start: 20140108, end: 20140108

REACTIONS (1)
  - Headache [None]
